FAERS Safety Report 8965980 (Version 1)
Quarter: 2012Q4

REPORT INFORMATION
  Report Type: 
  Country: US (occurrence: US)
  Receive Date: 20121214
  Receipt Date: 20121214
  Transmission Date: 20130627
  Serious: Yes (Other)
  Sender: FDA-Public Use
  Company Number: CHPA2012US024809

PATIENT
  Age: 74 Year
  Sex: Female

DRUGS (1)
  1. NUPERCAINAL HEMORRHOIDAL/ANES OINTMENT [Suspect]
     Indication: LACERATION
     Dosage: Unk, Unk
     Route: 061
     Dates: start: 1972

REACTIONS (4)
  - Benign ovarian tumour [Recovered/Resolved]
  - Rotator cuff syndrome [Recovered/Resolved]
  - Injury [Recovered/Resolved]
  - Off label use [Unknown]
